FAERS Safety Report 6782054-0 (Version None)
Quarter: 2010Q2

REPORT INFORMATION
  Report Type: 
  Country: None (occurrence: None)
  Receive Date: 20100621
  Receipt Date: 20100609
  Transmission Date: 20101027
  Serious: Yes (Hospitalization, Other)
  Sender: FDA-Public Use
  Company Number: B0652273A

PATIENT
  Sex: Female

DRUGS (6)
  1. VENTOLIN [Suspect]
     Indication: ASTHMA
     Dosage: 2PUFF AS REQUIRED
     Route: 055
     Dates: start: 20090801
  2. CITALOPRAM [Concomitant]
     Indication: DEPRESSION
     Route: 065
     Dates: start: 20091101
  3. BECLOMETHASONE INHALER [Concomitant]
     Indication: ASTHMA
     Dosage: 4PUFF PER DAY
     Route: 055
     Dates: start: 20090801
  4. PEPPERMINT OIL [Concomitant]
     Indication: IRRITABLE BOWEL SYNDROME
     Dosage: 1U THREE TIMES PER DAY
     Route: 065
     Dates: start: 20090601
  5. IMPLANON [Concomitant]
     Route: 065
     Dates: start: 20081006
  6. BECONASE [Concomitant]
     Indication: DRUG USE FOR UNKNOWN INDICATION
     Route: 065
     Dates: start: 20100501

REACTIONS (3)
  - ASTHMA [None]
  - PANIC ATTACK [None]
  - PRODUCT QUALITY ISSUE [None]
